FAERS Safety Report 6436527-0 (Version None)
Quarter: 2009Q4

REPORT INFORMATION
  Report Type: 
  Country: None (occurrence: None)
  Receive Date: 20091111
  Receipt Date: 20091103
  Transmission Date: 20100525
  Serious: Yes (Other)
  Sender: FDA-Public Use
  Company Number: US-GENENTECH-291892

PATIENT
  Sex: Female
  Weight: 65.306 kg

DRUGS (4)
  1. AVASTIN [Suspect]
     Indication: NON-SMALL CELL LUNG CANCER METASTATIC
     Dosage: 15 MG/KG, Q3W
     Route: 042
     Dates: start: 20080716, end: 20090806
  2. ALIMTA [Concomitant]
     Indication: NON-SMALL CELL LUNG CANCER METASTATIC
  3. CHEMOTHERAPY (UNK INGREDIENTS) [Concomitant]
     Indication: NON-SMALL CELL LUNG CANCER METASTATIC
  4. OMEPRAZOLE [Concomitant]
     Indication: DRUG USE FOR UNKNOWN INDICATION

REACTIONS (2)
  - TUBULOINTERSTITIAL NEPHRITIS [None]
  - VASCULITIS [None]
